FAERS Safety Report 9787657 (Version 2)
Quarter: 2014Q3

REPORT INFORMATION
  Report Type: Spontaneous
  Country: US (occurrence: None)
  Receive Date: 20131226
  Receipt Date: 20140915
  Transmission Date: 20150326
  Serious: Yes (Other)
  Sender: FDA-Public Use
  Company Number: 2013-US-004771

PATIENT
  Age: 51 Year
  Sex: Female
  Weight: 77.1 kg

DRUGS (2)
  1. ALLOPURINOL. [Suspect]
     Active Substance: ALLOPURINOL
     Indication: BLOOD URIC ACID INCREASED
     Route: 048
     Dates: start: 201310, end: 20131210
  2. XYREM [Suspect]
     Active Substance: SODIUM OXYBATE
     Indication: NARCOLEPSY
     Route: 048
     Dates: start: 201102, end: 2011

REACTIONS (10)
  - Oropharyngeal pain [None]
  - Angioedema [None]
  - Dyspnoea [None]
  - Epistaxis [None]
  - Nasal discomfort [None]
  - Chapped lips [None]
  - Condition aggravated [None]
  - Drug hypersensitivity [None]
  - Stomatitis haemorrhagic [None]
  - Blood uric acid increased [None]

NARRATIVE: CASE EVENT DATE: 2013
